FAERS Safety Report 15624861 (Version 1)
Quarter: 2018Q4

REPORT INFORMATION
  Report Type: Report from Study
  Country: US (occurrence: US)
  Receive Date: 20181116
  Receipt Date: 20181116
  Transmission Date: 20190205
  Serious: Yes (Life-Threatening, Other)
  Sender: FDA-Public Use
  Company Number: US-AMGEN-USACT2018159887

PATIENT
  Age: 62 Year
  Sex: Male

DRUGS (9)
  1. CARFILZOMIB [Suspect]
     Active Substance: CARFILZOMIB
     Indication: WALDENSTROM^S MACROGLOBULINAEMIA
     Dosage: 36 MG/M2, PER CHEMO REGIM
     Route: 042
     Dates: start: 20120117
  2. GUAIFENESIN. [Concomitant]
     Active Substance: GUAIFENESIN
     Dosage: UNK
  3. CARFILZOMIB [Suspect]
     Active Substance: CARFILZOMIB
     Dosage: UNK, UNK, PER CHEMO REGIM
     Route: 042
     Dates: start: 20130102
  4. DEXAMETHASONE. [Suspect]
     Active Substance: DEXAMETHASONE
     Indication: WALDENSTROM^S MACROGLOBULINAEMIA
     Dosage: 20 MG, PER CHEMO REGIM
     Route: 042
     Dates: start: 20120117
  5. RITUXIMAB. [Suspect]
     Active Substance: RITUXIMAB
     Indication: WALDENSTROM^S MACROGLOBULINAEMIA
     Dosage: 375 MG/M2, PER CHEMO REGIM
     Route: 042
     Dates: start: 20120118
  6. RITUXIMAB. [Suspect]
     Active Substance: RITUXIMAB
     Dosage: UNK, UNK, PER CHEMO REGIM
     Route: 042
     Dates: start: 20130102
  7. LOTRIMIN [Concomitant]
     Active Substance: CLOTRIMAZOLE
     Dosage: UNK
  8. DEXAMETHASONE. [Suspect]
     Active Substance: DEXAMETHASONE
     Dosage: UNK, UNK, PER CHEMO REGIM
     Route: 042
     Dates: start: 20130102
  9. FUROSEMIDE. [Concomitant]
     Active Substance: FUROSEMIDE
     Dosage: UNK

REACTIONS (1)
  - Neutrophil count decreased [Recovered/Resolved]

NARRATIVE: CASE EVENT DATE: 20121217
